FAERS Safety Report 5069160-6 (Version None)
Quarter: 2006Q3

REPORT INFORMATION
  Report Type: 
  Country: None (occurrence: None)
  Receive Date: 20060731
  Receipt Date: 20060718
  Transmission Date: 20061208
  Serious: Yes (Other)
  Sender: FDA-Public Use
  Company Number: 060721-0000707

PATIENT

DRUGS (9)
  1. ELSPAR [Suspect]
     Indication: ACUTE LYMPHOCYTIC LEUKAEMIA
     Dosage: 10000 U/M2 WEEKS, 5, 6, 8, 9, 27, 28, 33, 34; IM ; 10000 IU/M2 WEEKS 51-54;X9; IM
     Route: 030
  2. DEXAMETHASONE [Concomitant]
  3. VINCRISTINE [Concomitant]
  4. DAUNORUBICIN HCL [Concomitant]
  5. CYTARABINE [Concomitant]
  6. METHOTREXATE [Concomitant]
  7. 6-MP [Concomitant]
  8. ETOPOSIDE [Concomitant]
  9. CYCLOPHOSPHAMIDE [Concomitant]

REACTIONS (1)
  - SOFT TISSUE DISORDER [None]
